FAERS Safety Report 6082520-X (Version None)
Quarter: 2009Q1

REPORT INFORMATION
  Report Type: 
  Country: None (occurrence: None)
  Receive Date: 20090218
  Receipt Date: 20090206
  Transmission Date: 20090719
  Serious: Yes (Death, Hospitalization)
  Sender: FDA-Public Use
  Company Number: RU-WATSON-2009-00967

PATIENT
  Age: 54 Year
  Sex: Male

DRUGS (6)
  1. CYCLOSPORINE (WATSON LABORATORIES) [Suspect]
     Indication: PROPHYLAXIS AGAINST TRANSPLANT REJECTION
     Dosage: UNK MG, DAILY
     Dates: start: 19890101
  2. CYCLOSPORINE (WATSON LABORATORIES) [Suspect]
     Dosage: 150 MG, DAILY
     Dates: start: 20060101
  3. METHYLPREDNISOLONE ACETATE [Suspect]
     Indication: PROPHYLAXIS AGAINST TRANSPLANT REJECTION
     Dosage: 20 MG, DAILY
     Dates: start: 20060101
  4. PREDNISOLONE (WATSON LABORATORIES) [Suspect]
     Indication: PROPHYLAXIS AGAINST TRANSPLANT REJECTION
     Dosage: UNK
     Dates: start: 19890101
  5. AZATHIOPRINE [Suspect]
     Indication: PROPHYLAXIS AGAINST TRANSPLANT REJECTION
     Dosage: UNK
     Dates: start: 19890101
  6. MYCOPHENOLIC ACID [Suspect]
     Indication: PROPHYLAXIS AGAINST TRANSPLANT REJECTION
     Dosage: 1440 MG, DAILY
     Dates: start: 20060101

REACTIONS (6)
  - AORTITIS [None]
  - ARTERIAL THROMBOSIS LIMB [None]
  - DIABETES MELLITUS [None]
  - HYPERTROPHIC CARDIOMYOPATHY [None]
  - MULTIPLE MYELOMA [None]
  - SEPTIC SHOCK [None]
